FAERS Safety Report 7214696-2 (Version None)
Quarter: 2011Q1

REPORT INFORMATION
  Report Type: 
  Country: None (occurrence: None)
  Receive Date: 20110107
  Receipt Date: 20091117
  Transmission Date: 20110831
  Serious: No
  Sender: FDA-Public Use
  Company Number: A0822138A

PATIENT
  Age: 72 Year
  Sex: Female

DRUGS (1)
  1. LOVAZA [Suspect]
     Dosage: 2G TWICE PER DAY
     Route: 065
     Dates: start: 20091022, end: 20091029

REACTIONS (2)
  - LIP SWELLING [None]
  - STOMATITIS [None]
